FAERS Safety Report 13648763 (Version 1)
Quarter: 2017Q2

REPORT INFORMATION
  Report Type: Spontaneous
  Country: ZA (occurrence: ZA)
  Receive Date: 20170613
  Receipt Date: 20170613
  Transmission Date: 20170830
  Serious: Yes (Other)
  Sender: FDA-Public Use
  Company Number: ZA-JNJFOC-20170607840

PATIENT
  Sex: Male

DRUGS (1)
  1. REVELLEX [Suspect]
     Active Substance: INFLIXIMAB
     Indication: PRODUCT USED FOR UNKNOWN INDICATION
     Route: 042

REACTIONS (1)
  - Exposure to communicable disease [Unknown]
